FAERS Safety Report 14891112 (Version 1)
Quarter: 2018Q2

REPORT INFORMATION
  Report Type: Spontaneous
  Country: US (occurrence: US)
  Receive Date: 20180426
  Receipt Date: 20180426
  Transmission Date: 20180711
  Serious: Yes (Hospitalization, Disabling, Other)
  Sender: FDA-Public Use
  Company Number: None

PATIENT
  Age: 68 Year
  Sex: Male
  Weight: 113.17 kg

DRUGS (1)
  1. ADENOSINE. [Suspect]
     Active Substance: ADENOSINE
     Indication: CARDIAC STRESS TEST
     Dosage: ?          OTHER FREQUENCY:OTHER ;?
     Route: 042
     Dates: start: 20180411, end: 20180411

REACTIONS (2)
  - Transient ischaemic attack [None]
  - Hypoaesthesia [None]

NARRATIVE: CASE EVENT DATE: 20180411
